FAERS Safety Report 15000548 (Version 1)
Quarter: 2018Q2

REPORT INFORMATION
  Report Type: Spontaneous
  Country: US (occurrence: US)
  Receive Date: 20180612
  Receipt Date: 20180612
  Transmission Date: 20180711
  Serious: No
  Sender: FDA-Public Use
  Company Number: US-BEH-2018091535

PATIENT
  Age: 55 Year
  Sex: Female
  Weight: 111.11 kg

DRUGS (49)
  1. PRIVIGEN [Suspect]
     Active Substance: HUMAN IMMUNOGLOBULIN G
     Dosage: UNK
     Route: 042
  2. ALLEGRA [Concomitant]
     Active Substance: FEXOFENADINE HYDROCHLORIDE
  3. AZO [Concomitant]
     Active Substance: PHENAZOPYRIDINE HYDROCHLORIDE
  4. CLONAZEPAM. [Concomitant]
     Active Substance: CLONAZEPAM
  5. SINGULAIR [Concomitant]
     Active Substance: MONTELUKAST SODIUM
  6. PRILOSEC [Concomitant]
     Active Substance: OMEPRAZOLE MAGNESIUM
  7. FLOMAX [Concomitant]
     Active Substance: TAMSULOSIN HYDROCHLORIDE
  8. OXYGEN. [Concomitant]
     Active Substance: OXYGEN
  9. ASPIRIN. [Concomitant]
     Active Substance: ASPIRIN
  10. LIDOCAINE. [Concomitant]
     Active Substance: LIDOCAINE
  11. SODIUM CHLORIDE. [Concomitant]
     Active Substance: SODIUM CHLORIDE
  12. CARTIA                             /00002701/ [Concomitant]
     Active Substance: ASPIRIN
  13. NORCO [Concomitant]
     Active Substance: ACETAMINOPHEN\HYDROCODONE BITARTRATE
  14. VITAMINS WITH MINERALS [Concomitant]
     Active Substance: MINERALS\VITAMINS
  15. FLONASE [Concomitant]
     Active Substance: FLUTICASONE PROPIONATE
  16. SENNA                              /00142201/ [Concomitant]
     Active Substance: SENNA LEAF
  17. MIRALAX [Concomitant]
     Active Substance: POLYETHYLENE GLYCOL 3350
  18. KEPPRA [Concomitant]
     Active Substance: LEVETIRACETAM
  19. THALOMID [Concomitant]
     Active Substance: THALIDOMIDE
  20. PRIVIGEN [Suspect]
     Active Substance: HUMAN IMMUNOGLOBULIN G
     Dosage: UNK
     Route: 042
     Dates: start: 201407
  21. ACETAMINOPHEN. [Concomitant]
     Active Substance: ACETAMINOPHEN
     Route: 065
  22. LEVOTHYROXINE. [Concomitant]
     Active Substance: LEVOTHYROXINE
  23. TEMOVATE [Concomitant]
     Active Substance: CLOBETASOL PROPIONATE
  24. DANTRIUM [Concomitant]
     Active Substance: DANTROLENE SODIUM
  25. CYMBALTA [Concomitant]
     Active Substance: DULOXETINE HYDROCHLORIDE
  26. PRAVASTATIN. [Concomitant]
     Active Substance: PRAVASTATIN
  27. METFORMIN [Concomitant]
     Active Substance: METFORMIN HYDROCHLORIDE
  28. BACLOFEN. [Concomitant]
     Active Substance: BACLOFEN
  29. PRIVIGEN [Suspect]
     Active Substance: HUMAN IMMUNOGLOBULIN G
     Dosage: 90 G, EVERY 3 WEEKS
     Route: 042
     Dates: start: 20140911
  30. NORMAL SALINE [Concomitant]
     Active Substance: SODIUM CHLORIDE
  31. EPINEPHRINE. [Concomitant]
     Active Substance: EPINEPHRINE
  32. LMX                                /00033401/ [Concomitant]
  33. PREDNISONE. [Concomitant]
     Active Substance: PREDNISONE
  34. ALBUTEROL                          /00139501/ [Concomitant]
     Active Substance: ALBUTEROL
  35. NORTRIPTYLINE [Concomitant]
     Active Substance: NORTRIPTYLINE
  36. PRIVIGEN [Suspect]
     Active Substance: HUMAN IMMUNOGLOBULIN G
     Indication: BEHCET^S SYNDROME
     Dosage: UNK
     Route: 042
  37. SUDAFED [Concomitant]
     Active Substance: PSEUDOEPHEDRINE HYDROCHLORIDE
  38. TRAMADOL. [Concomitant]
     Active Substance: TRAMADOL
  39. QVAR [Concomitant]
     Active Substance: BECLOMETHASONE DIPROPIONATE
  40. FISH OIL [Concomitant]
     Active Substance: FISH OIL
  41. TYLENOL [Concomitant]
     Active Substance: ACETAMINOPHEN
  42. DIPHENHYDRAMINE. [Concomitant]
     Active Substance: DIPHENHYDRAMINE
  43. CLINDAMYCIN. [Concomitant]
     Active Substance: CLINDAMYCIN
  44. BENAZEPRIL [Concomitant]
     Active Substance: BENAZEPRIL HYDROCHLORIDE
  45. VALIUM [Concomitant]
     Active Substance: DIAZEPAM
  46. ZOFRAN [Concomitant]
     Active Substance: ONDANSETRON HYDROCHLORIDE
  47. CALCIUM [Concomitant]
     Active Substance: CALCIUM
  48. BECLOMETHASONE                     /00212602/ [Concomitant]
     Active Substance: BECLOMETHASONE
  49. FOLIC ACID. [Concomitant]
     Active Substance: FOLIC ACID

REACTIONS (1)
  - Blood pressure increased [Unknown]

NARRATIVE: CASE EVENT DATE: 20180607
